FAERS Safety Report 8716237 (Version 2)
Quarter: 2012Q4

REPORT INFORMATION
  Report Type: 
  Country: JP (occurrence: JP)
  Receive Date: 20120810
  Receipt Date: 20121203
  Transmission Date: 20130627
  Serious: Yes (Hospitalization)
  Sender: FDA-Public Use
  Company Number: JP-009507513-1208JPN000660

PATIENT
  Age: 64 Year
  Sex: Female

DRUGS (4)
  1. BONALON [Suspect]
     Indication: OSTEOPOROSIS
     Dosage: 5 mg, daily
     Route: 048
     Dates: start: 2003, end: 20080108
  2. BONALON [Suspect]
     Indication: OSTEOPOROSIS
     Dosage: 35 mg, qw
     Route: 048
     Dates: start: 20080109, end: 20110827
  3. PREDONINE [Concomitant]
     Indication: AUTOIMMUNE HEPATITIS
     Dosage: 5 mg/day
     Route: 048
     Dates: start: 20000821
  4. IMURAN (AZATHIOPRINE) [Concomitant]
     Indication: AUTOIMMUNE HEPATITIS
     Dosage: 50 mg/day
     Route: 048
     Dates: start: 20000821

REACTIONS (5)
  - Femur fracture [Recovered/Resolved]
  - Femur fracture [Recovered/Resolved]
  - Fall [None]
  - Bone density decreased [None]
  - Bone disorder [None]
